FAERS Safety Report 20669760 (Version 1)
Quarter: 2022Q2

REPORT INFORMATION
  Report Type: Spontaneous
  Country: CN (occurrence: CN)
  Receive Date: 20220404
  Receipt Date: 20220404
  Transmission Date: 20220721
  Serious: Yes (Other)
  Sender: FDA-Public Use
  Company Number: CN-PFIZER INC-202200458173

PATIENT
  Age: 44 Year
  Sex: Male
  Weight: 63 kg

DRUGS (8)
  1. EPIRUBICIN HYDROCHLORIDE [Suspect]
     Active Substance: EPIRUBICIN HYDROCHLORIDE
     Indication: Neoplasm malignant
     Dosage: 30 MG, 1X/DAY
     Route: 041
     Dates: start: 20220214, end: 20220216
  2. IFOSFAMIDE [Suspect]
     Active Substance: IFOSFAMIDE
     Indication: Neoplasm malignant
     Dosage: 3 G, 1X/DAY
     Route: 041
     Dates: start: 20220214, end: 20220218
  3. SODIUM CHLORIDE [Concomitant]
     Active Substance: SODIUM CHLORIDE
     Indication: Chemotherapy
     Dosage: 1000.000 ML, 1X/DAY
     Route: 041
     Dates: start: 20220214, end: 20220218
  4. SODIUM CHLORIDE [Concomitant]
     Active Substance: SODIUM CHLORIDE
     Indication: Neoplasm malignant
  5. SODIUM CHLORIDE [Concomitant]
     Active Substance: SODIUM CHLORIDE
     Indication: Chemotherapy
     Dosage: 100.0000 ML, 1X/DAY
     Route: 041
     Dates: start: 20220214, end: 20220216
  6. SODIUM CHLORIDE [Concomitant]
     Active Substance: SODIUM CHLORIDE
     Indication: Neoplasm malignant
  7. STERILE WATER [Concomitant]
     Active Substance: WATER
     Indication: Chemotherapy
     Dosage: 15.000 ML, 1X/DAY
     Route: 041
     Dates: start: 20220214, end: 20220218
  8. STERILE WATER [Concomitant]
     Active Substance: WATER
     Indication: Neoplasm malignant

REACTIONS (4)
  - Abdominal distension [Recovering/Resolving]
  - Nausea [Recovering/Resolving]
  - Constipation [Recovering/Resolving]
  - Decreased appetite [Recovering/Resolving]

NARRATIVE: CASE EVENT DATE: 20220215
